FAERS Safety Report 5289792-X (Version None)
Quarter: 2007Q2

REPORT INFORMATION
  Report Type: 
  Country: None (occurrence: None)
  Receive Date: 20070406
  Receipt Date: 20070326
  Transmission Date: 20071010
  Serious: Yes (Other)
  Sender: FDA-Public Use
  Company Number: ES-PFIZER INC-2005172751

PATIENT
  Sex: Male
  Weight: 81 kg

DRUGS (2)
  1. LYRICA [Suspect]
     Indication: SOCIAL PHOBIA
     Dosage: DAILY DOSE:300MG
     Route: 048
     Dates: start: 20050801, end: 20060101
  2. SERTRALINE [Concomitant]

REACTIONS (1)
  - HYPERGLYCAEMIA [None]
